FAERS Safety Report 14905918 (Version 1)
Quarter: 2018Q2

REPORT INFORMATION
  Report Type: Spontaneous
  Country: US (occurrence: US)
  Receive Date: 20180517
  Receipt Date: 20180517
  Transmission Date: 20180711
  Serious: No
  Sender: FDA-Public Use
  Company Number: US-SA-2018SA048441

PATIENT
  Age: 69 Year
  Sex: Female

DRUGS (3)
  1. NOVOLOG [Suspect]
     Active Substance: INSULIN ASPART
     Route: 065
     Dates: end: 201704
  2. LANTUS [Suspect]
     Active Substance: INSULIN GLARGINE
     Route: 051
     Dates: end: 201704
  3. FLEXPEN [Suspect]
     Active Substance: UNSPECIFIED INGREDIENT
     Indication: DEVICE THERAPY
     Dates: end: 201704

REACTIONS (1)
  - Blood glucose increased [Recovered/Resolved]

NARRATIVE: CASE EVENT DATE: 201702
